FAERS Safety Report 15839364 (Version 2)
Quarter: 2019Q1

REPORT INFORMATION
  Report Type: Spontaneous
  Country: HU (occurrence: HU)
  Receive Date: 20190117
  Receipt Date: 20190307
  Transmission Date: 20190417
  Serious: Yes (Life-Threatening, Hospitalization)
  Sender: FDA-Public Use
  Company Number: HU-ALLERGAN-1902085US

PATIENT
  Sex: Female

DRUGS (10)
  1. ESCITALOPRAM OXALATE - BP [Suspect]
     Active Substance: ESCITALOPRAM OXALATE
     Indication: SUICIDE ATTEMPT
  2. MOCLOBEMID [Suspect]
     Active Substance: MOCLOBEMIDE
     Indication: DEPRESSION
     Dosage: OVERDOSE: UNKNOWN DOSE
     Route: 065
  3. CYPROHEPTADIN [Concomitant]
     Indication: PRODUCT USED FOR UNKNOWN INDICATION
     Dosage: UNK
     Route: 065
  4. MOCLOBEMID [Suspect]
     Active Substance: MOCLOBEMIDE
     Indication: SUICIDE ATTEMPT
  5. SERTRALINE HCL [Suspect]
     Active Substance: SERTRALINE HYDROCHLORIDE
     Indication: SUICIDE ATTEMPT
     Dosage: OVERDOSE: UNKNOWN DOSE
     Route: 065
  6. MONOAMINE OXIDASE A INHIBITORS [Concomitant]
     Active Substance: UNSPECIFIED INGREDIENT
     Indication: PRODUCT USED FOR UNKNOWN INDICATION
  7. ESCITALOPRAM OXALATE - BP [Suspect]
     Active Substance: ESCITALOPRAM OXALATE
     Indication: DEPRESSION
     Dosage: OVERDOSE: UNKNOWN DOSE
     Route: 065
  8. SSRI [Concomitant]
     Active Substance: UNSPECIFIED INGREDIENT
  9. BENZODIAZEPINE DERIVATIVES [Concomitant]
     Active Substance: BENZODIAZEPINE
     Indication: PRODUCT USED FOR UNKNOWN INDICATION
  10. SERTRALINE HCL [Suspect]
     Active Substance: SERTRALINE HYDROCHLORIDE
     Indication: DEPRESSION

REACTIONS (9)
  - Muscle rigidity [Unknown]
  - Hyperthermia [Unknown]
  - Serotonin syndrome [Recovered/Resolved with Sequelae]
  - Suicidal ideation [Recovered/Resolved]
  - Suicide attempt [Unknown]
  - Tremor [Unknown]
  - Myoglobin blood increased [Unknown]
  - Serotonin syndrome [Unknown]
  - Intentional overdose [Recovered/Resolved]
